FAERS Safety Report 12474345 (Version 1)
Quarter: 2016Q2

REPORT INFORMATION
  Report Type: Spontaneous
  Country: US (occurrence: None)
  Receive Date: 20160616
  Receipt Date: 20160616
  Transmission Date: 20160815
  Serious: Yes (Other)
  Sender: FDA-Public Use
  Company Number: None

PATIENT
  Age: 74 Year
  Sex: Male
  Weight: 82.56 kg

DRUGS (2)
  1. SULFAMETHOXAZOLE TABLETS USP [Suspect]
     Active Substance: SULFAMETHOXAZOLE
     Indication: SINUSITIS
     Route: 048
     Dates: start: 20160601, end: 20160610
  2. DIOVAN [Concomitant]
     Active Substance: VALSARTAN

REACTIONS (7)
  - Glossodynia [None]
  - Dysgeusia [None]
  - Muscle spasms [None]
  - Ageusia [None]
  - Genital infection fungal [None]
  - Urticaria [None]
  - Chapped lips [None]

NARRATIVE: CASE EVENT DATE: 20160608
